FAERS Safety Report 11331013 (Version 1)
Quarter: 2015Q3

REPORT INFORMATION
  Report Type: Spontaneous
  Country: US (occurrence: None)
  Receive Date: 20150730
  Receipt Date: 20150730
  Transmission Date: 20151125
  Serious: No
  Sender: FDA-Public Use
  Company Number: None

PATIENT
  Age: 29 Year
  Sex: Male
  Weight: 90.72 kg

DRUGS (2)
  1. PERCOCET [Suspect]
     Active Substance: ACETAMINOPHEN\OXYCODONE HYDROCHLORIDE
     Indication: PAIN
     Dosage: 1-2 PILLS AS NEEDED FOR PAIN
     Route: 048
     Dates: start: 20150729, end: 20150729
  2. IMITREX [Concomitant]
     Active Substance: SUMATRIPTAN\SUMATRIPTAN SUCCINATE

REACTIONS (5)
  - Drug ineffective [None]
  - Pharyngeal oedema [None]
  - Pain [None]
  - Product substitution issue [None]
  - Throat tightness [None]

NARRATIVE: CASE EVENT DATE: 20150729
